FAERS Safety Report 5755899-3 (Version None)
Quarter: 2008Q2

REPORT INFORMATION
  Report Type: 
  Country: None (occurrence: None)
  Receive Date: 20080528
  Receipt Date: 20080512
  Transmission Date: 20081010
  Serious: Yes (Other)
  Sender: FDA-Public Use
  Company Number: VNL_01102_2008

PATIENT
  Sex: Male

DRUGS (2)
  1. APO-GO (APO-GO PFS 5 MG/ML SOLUTION FOR INFUSION IN PRE-FILLED SYRINGE [Suspect]
     Indication: PARKINSON'S DISEASE
     Dosage: 4 MG PER HOUR FOR UNKNOWN WITH A 4 MG BOLUS [BOLUS FREQUENCY UNKNOWN] SUBCUTANEOUS
     Route: 058
     Dates: start: 20070101
  2. APO-GO (APO-GO PENS - AMPOMORPHINE HYDROCHLORIDE) [Suspect]
     Indication: PARKINSON'S DISEASE
     Dosage: DF SUBCUTANEOUS

REACTIONS (3)
  - EPILEPSY [None]
  - INJECTION SITE NODULE [None]
  - ORTHOSTATIC HYPOTENSION [None]
